FAERS Safety Report 6167197-7 (Version None)
Quarter: 2009Q2

REPORT INFORMATION
  Report Type: 
  Country: None (occurrence: None)
  Receive Date: 20090424
  Receipt Date: 20090414
  Transmission Date: 20091009
  Serious: Yes (Hospitalization)
  Sender: FDA-Public Use
  Company Number: BR-ABBOTT-08P-020-0492611-00

PATIENT
  Sex: Female
  Weight: 45 kg

DRUGS (10)
  1. HUMIRA [Suspect]
     Indication: RHEUMATOID ARTHRITIS
     Route: 058
     Dates: start: 20080929
  2. HUMIRA [Suspect]
     Route: 058
  3. LASIX [Concomitant]
     Indication: CARDIAC DISORDER
     Route: 048
  4. ALDACTONE [Concomitant]
     Indication: CARDIAC DISORDER
  5. CAPTOPRIL [Concomitant]
     Indication: HYPERTENSION
  6. CLEZAC [Concomitant]
     Indication: DRUG USE FOR UNKNOWN INDICATION
  7. ASPIRIN [Concomitant]
     Indication: DRUG USE FOR UNKNOWN INDICATION
  8. TRAZODONE [Concomitant]
     Indication: SLEEP DISORDER THERAPY
     Route: 048
  9. AAS [Concomitant]
     Indication: CARDIAC DISORDER
     Route: 048
  10. CARBAMAZEPINE [Concomitant]
     Indication: EPILEPSY
     Route: 048

REACTIONS (8)
  - ABASIA [None]
  - ASTHENIA [None]
  - BLOOD SODIUM DECREASED [None]
  - CONSTIPATION [None]
  - DYSSTASIA [None]
  - EPILEPSY [None]
  - FALL [None]
  - MEMORY IMPAIRMENT [None]
